FAERS Safety Report 4745695-8 (Version None)
Quarter: 2005Q3

REPORT INFORMATION
  Report Type: 
  Country: None (occurrence: None)
  Receive Date: 20050811
  Receipt Date: 20050804
  Transmission Date: 20060218
  Serious: Yes (Hospitalization)
  Sender: FDA-Public Use
  Company Number: 2005110623

PATIENT
  Age: 57 Year
  Sex: Female

DRUGS (3)
  1. TRIFLUCAN (FLUCONAZOLE) [Suspect]
     Indication: ILL-DEFINED DISORDER
     Dosage: 50 MG (50 MG, INTERVAL: EVERY DAY), ORAL
     Route: 048
     Dates: start: 20050624, end: 20050709
  2. PHENYTOIN [Suspect]
     Indication: ILL-DEFINED DISORDER
     Dosage: 200 MG (100 MG, INTERVAL:  EVERY DAY), ORAL
     Route: 048
     Dates: start: 20050602, end: 20050709
  3. FUROSEMIDE [Concomitant]

REACTIONS (4)
  - GAMMA-GLUTAMYLTRANSFERASE INCREASED [None]
  - MUCOSAL EROSION [None]
  - PLATELET COUNT DECREASED [None]
  - RASH ERYTHEMATOUS [None]
